FAERS Safety Report 13224386 (Version 2)
Quarter: 2018Q1

REPORT INFORMATION
  Report Type: Other
  Country: US (occurrence: US)
  Receive Date: 20170212
  Receipt Date: 20180130
  Transmission Date: 20180508
  Serious: No
  Sender: FDA-Public Use
  Company Number: US-ACORDA-ACO_128021_2016

PATIENT
  Sex: Female

DRUGS (2)
  1. AMPYRA [Suspect]
     Active Substance: DALFAMPRIDINE
     Indication: MULTIPLE SCLEROSIS
     Dosage: 10 MG, BID
     Route: 048
     Dates: start: 20150526
  2. AMPYRA [Suspect]
     Active Substance: DALFAMPRIDINE
     Dosage: UNKNOWN
     Route: 065

REACTIONS (2)
  - Memory impairment [Unknown]
  - Drug dose omission [Unknown]
